FAERS Safety Report 12346480 (Version 4)
Quarter: 2018Q1

REPORT INFORMATION
  Report Type: Report from Study
  Country: JP (occurrence: JP)
  Receive Date: 20160509
  Receipt Date: 20180104
  Transmission Date: 20180508
  Serious: Yes (Hospitalization)
  Sender: FDA-Public Use
  Company Number: JP-ROCHE-1753375

PATIENT
  Age: 23 Year
  Sex: Male
  Weight: 54 kg

DRUGS (14)
  1. FLAGYL [Concomitant]
     Active Substance: METRONIDAZOLE\METRONIDAZOLE HYDROCHLORIDE
     Indication: DURAL ABSCESS
     Route: 065
     Dates: start: 20130907, end: 20131108
  2. MERCAZOLE (JAPAN) [Concomitant]
     Active Substance: METHIMAZOLE
     Indication: BASEDOW^S DISEASE
     Route: 065
     Dates: start: 20130829
  3. POTASSIUM IODIDE. [Concomitant]
     Active Substance: POTASSIUM IODIDE
     Indication: BASEDOW^S DISEASE
     Route: 048
     Dates: start: 20130829
  4. ALEVIATIN [Concomitant]
     Active Substance: PHENYTOIN SODIUM
     Indication: SEIZURE
     Route: 065
     Dates: start: 20130906, end: 20130917
  5. VEEN-D [Concomitant]
     Active Substance: DEXTROSE
     Route: 065
     Dates: start: 20130910, end: 20130913
  6. GLYCEOL [Concomitant]
     Active Substance: GLYCERIN
     Indication: PRODUCT USED FOR UNKNOWN INDICATION
     Route: 041
     Dates: start: 20130831, end: 20131016
  7. CEFTRIAXONE. [Suspect]
     Active Substance: CEFTRIAXONE
     Indication: STREPTOCOCCAL INFECTION
     Route: 042
     Dates: start: 20130907, end: 20131023
  8. CEFTRIAXONE. [Suspect]
     Active Substance: CEFTRIAXONE
     Indication: DURAL ABSCESS
  9. E KEPPRA [Concomitant]
     Active Substance: LEVETIRACETAM
     Indication: SEIZURE
     Route: 065
     Dates: start: 20130906
  10. PANTOL (PANTHENOL) [Concomitant]
     Route: 065
     Dates: start: 20130908, end: 20130913
  11. NEXIUM [Concomitant]
     Active Substance: ESOMEPRAZOLE MAGNESIUM
     Indication: GASTRIC ULCER
     Route: 065
     Dates: start: 20130907
  12. PHENOBAL [Concomitant]
     Active Substance: PHENOBARBITAL
     Indication: SEIZURE
     Route: 065
     Dates: start: 20130906
  13. LACTEC [Concomitant]
     Active Substance: CALCIUM CHLORIDE ANHYDROUS\POTASSIUM CHLORIDE\SODIUM CHLORIDE\SODIUM LACTATE
     Route: 065
     Dates: start: 20130904, end: 20130913
  14. GASTER (CHINA) [Concomitant]
     Route: 065
     Dates: start: 20130831, end: 20130907

REACTIONS (2)
  - Drug-induced liver injury [Unknown]
  - Cholelithiasis [Recovered/Resolved]

NARRATIVE: CASE EVENT DATE: 20131023
